FAERS Safety Report 7954080-7 (Version None)
Quarter: 2011Q4

REPORT INFORMATION
  Report Type: 
  Country: None (occurrence: None)
  Receive Date: 20111202
  Receipt Date: 20111122
  Transmission Date: 20120403
  Serious: Yes (Hospitalization, Other)
  Sender: FDA-Public Use
  Company Number: US-BAYER-2011-029622

PATIENT
  Age: 31 Year
  Sex: Female
  Weight: 90.703 kg

DRUGS (2)
  1. YASMIN [Suspect]
     Indication: CONTRACEPTION
     Dosage: UNK
     Dates: start: 20080204, end: 20080620
  2. DROSPIRENONE AND ETHINYL ESTRADIOL [Suspect]
     Indication: CONTRACEPTION
     Dosage: UNK
     Dates: start: 20080709, end: 20100426

REACTIONS (6)
  - CHOLECYSTITIS CHRONIC [None]
  - BILIARY COLIC [None]
  - ANXIETY [None]
  - CHOLELITHIASIS [None]
  - PAIN [None]
  - ANHEDONIA [None]
